FAERS Safety Report 5120513-7 (Version None)
Quarter: 2006Q4

REPORT INFORMATION
  Report Type: 
  Country: None (occurrence: None)
  Receive Date: 20061004
  Receipt Date: 20060815
  Transmission Date: 20070319
  Serious: Yes (Hospitalization)
  Sender: FDA-Public Use
  Company Number: BE-AVENTIS-200616852US

PATIENT
  Sex: Female
  Weight: 48 kg

DRUGS (10)
  1. INDAPAMIDE [Suspect]
     Indication: BLOOD PRESSURE DIASTOLIC INCREASED
     Dosage: DOSE: 3 TABLETS/WEEK
     Route: 048
     Dates: start: 20040119, end: 20040203
  2. PRIMPERAN TAB [Concomitant]
     Dosage: DOSE: UNK
  3. IMURAN [Concomitant]
     Dosage: DOSE: UNK
     Dates: start: 20030414
  4. BRUFEN [Concomitant]
     Dosage: DOSE: UNK
  5. ROFENID [Concomitant]
     Dosage: DOSE: UNK
  6. BETAHISTINE [Concomitant]
     Dosage: DOSE: UNK
  7. DAFALGAN [Concomitant]
     Dosage: DOSE: UNK
  8. ASPIRIN [Concomitant]
     Dosage: DOSE: UNK
  9. LORAZEPAM [Concomitant]
     Dosage: DOSE: UNK
  10. AROPAX [Concomitant]
     Dosage: DOSE: UNK

REACTIONS (4)
  - DRUG TOXICITY [None]
  - INFLUENZA LIKE ILLNESS [None]
  - STEVENS-JOHNSON SYNDROME [None]
  - TOXIC EPIDERMAL NECROLYSIS [None]
